FAERS Safety Report 5746332-6 (Version None)
Quarter: 2008Q2

REPORT INFORMATION
  Report Type: 
  Country: None (occurrence: None)
  Receive Date: 20080522
  Receipt Date: 20080513
  Transmission Date: 20081010
  Serious: Yes (Hospitalization)
  Sender: FDA-Public Use
  Company Number: PHHO2008ES06138

PATIENT
  Age: 46 Year
  Sex: Male

DRUGS (12)
  1. CYCLOSPORINE [Suspect]
     Indication: RENAL TRANSPLANT
     Dosage: 150 MG DAILY
     Dates: start: 20040921, end: 20050125
  2. CYCLOSPORINE [Suspect]
     Dosage: UNKNOWN DOSE
     Dates: end: 20050125
  3. MYCOPHENOLATE MOFETIL [Suspect]
     Dosage: UNK, UNK
     Dates: start: 20040921
  4. MYCOPHENOLATE MOFETIL [Suspect]
     Dosage: 500 MG, BID
  5. DACLIZUMAB [Suspect]
     Indication: RENAL TRANSPLANT
     Route: 042
     Dates: start: 20040921, end: 20041117
  6. PREDNISOLONE [Suspect]
     Indication: RENAL TRANSPLANT
     Dates: start: 20040921
  7. FUROSEMIDE [Concomitant]
  8. RANUBER [Concomitant]
  9. AUGMENTIN '125' [Concomitant]
  10. AMLODIPINE BESYLATE [Concomitant]
  11. DARBEPOETIN ALFA [Concomitant]
  12. DOXAZOSIN MESYLATE [Concomitant]

REACTIONS (17)
  - BACK PAIN [None]
  - CALCULUS URINARY [None]
  - CHILLS [None]
  - COMPLICATIONS OF TRANSPLANTED KIDNEY [None]
  - CONGENITAL CYSTIC KIDNEY DISEASE [None]
  - CYTOMEGALOVIRUS INFECTION [None]
  - DYSURIA [None]
  - ESCHERICHIA INFECTION [None]
  - HAEMATURIA [None]
  - HEADACHE [None]
  - PERIRENAL HAEMATOMA [None]
  - PSEUDOMONAS INFECTION [None]
  - PYREXIA [None]
  - RENAL ARTERY OCCLUSION [None]
  - RENAL CYST [None]
  - SEPSIS [None]
  - URINARY TRACT INFECTION BACTERIAL [None]
